FAERS Safety Report 24067641 (Version 1)
Quarter: 2024Q3

REPORT INFORMATION
  Report Type: Spontaneous
  Country: PT (occurrence: PT)
  Receive Date: 20240710
  Receipt Date: 20240710
  Transmission Date: 20241017
  Serious: Yes (Life-Threatening, Hospitalization, Other)
  Sender: RANBAXY
  Company Number: PT-SUN PHARMACEUTICAL INDUSTRIES LTD-2024R1-455756

PATIENT
  Age: 38 Year
  Sex: Female

DRUGS (1)
  1. FERROUS SULFATE [Suspect]
     Active Substance: FERROUS SULFATE
     Indication: Iron deficiency anaemia
     Dosage: 90 TABLETS OF 329.7 MG
     Route: 048

REACTIONS (6)
  - Toxicity to various agents [Unknown]
  - Intentional self-injury [Unknown]
  - Suicide attempt [Unknown]
  - Acute hepatic failure [Unknown]
  - Encephalopathy [Unknown]
  - Hypoglycaemia [Unknown]
